FAERS Safety Report 6493766-0 (Version None)
Quarter: 2009Q4

REPORT INFORMATION
  Report Type: 
  Country: None (occurrence: None)
  Receive Date: 20091214
  Receipt Date: 20081120
  Transmission Date: 20100525
  Serious: No
  Sender: FDA-Public Use
  Company Number: US-BRISTOL-MYERS SQUIBB COMPANY-14371371

PATIENT
  Age: 59 Year
  Sex: Female

DRUGS (4)
  1. ABILIFY [Suspect]
     Indication: DEPRESSION
     Dosage: DOSE INCREASED TO 5MG
     Dates: start: 20080908
  2. ABILIFY [Suspect]
     Indication: IRRITABILITY
     Dosage: DOSE INCREASED TO 5MG
     Dates: start: 20080908
  3. ABILIFY [Suspect]
     Indication: ANGER
     Dosage: DOSE INCREASED TO 5MG
     Dates: start: 20080908
  4. CELEXA [Concomitant]

REACTIONS (2)
  - DIZZINESS [None]
  - FALL [None]
